FAERS Safety Report 24792234 (Version 2)
Quarter: 2024Q4

REPORT INFORMATION
  Report Type: Spontaneous
  Country: BY (occurrence: BY)
  Receive Date: 20241231
  Receipt Date: 20241231
  Transmission Date: 20250115
  Serious: Yes (Other)
  Sender: RANBAXY
  Company Number: BY-SUN PHARMACEUTICAL INDUSTRIES LTD-2024R1-485219

PATIENT
  Age: 15 Year
  Sex: Female

DRUGS (1)
  1. OXCARBAZEPINE [Suspect]
     Active Substance: OXCARBAZEPINE
     Indication: Product used for unknown indication
     Dosage: UNK (1 TABLET 3 TIMES A DAY)
     Route: 048
     Dates: start: 20231013, end: 20231025

REACTIONS (7)
  - Suicidal ideation [Recovered/Resolved with Sequelae]
  - Apathy [Recovered/Resolved with Sequelae]
  - Irritability [Recovered/Resolved with Sequelae]
  - Nervousness [Recovered/Resolved with Sequelae]
  - Somnolence [Recovered/Resolved with Sequelae]
  - Tremor [Recovered/Resolved with Sequelae]
  - Blood pressure increased [Recovered/Resolved with Sequelae]

NARRATIVE: CASE EVENT DATE: 20231015
